FAERS Safety Report 4927963-X (Version None)
Quarter: 2006Q1

REPORT INFORMATION
  Report Type: 
  Country: None (occurrence: None)
  Receive Date: 20060223
  Receipt Date: 20060214
  Transmission Date: 20060701
  Serious: Yes (Hospitalization)
  Sender: FDA-Public Use
  Company Number: 2006021456

PATIENT
  Sex: Male

DRUGS (10)
  1. LONITEN [Suspect]
     Indication: ESSENTIAL HYPERTENSION
     Dosage: ORAL; 5 MG, ORAL
     Route: 048
     Dates: start: 20050601, end: 20051201
  2. LONITEN [Suspect]
     Indication: ESSENTIAL HYPERTENSION
     Dosage: ORAL; 5 MG, ORAL
     Route: 048
     Dates: start: 20051201, end: 20060123
  3. RIFAMPIN AND ISONIAZID [Suspect]
     Indication: ILL-DEFINED DISORDER
     Dosage: 4 DOSAGE FORMS (QID INTERVAL: EVERY DAY), ORAL
     Route: 048
     Dates: end: 20051230
  4. TOREM (TORASEMIDE) [Concomitant]
  5. MYFORTIC (MYCOPHENOLIC ACID SODIUM SALT) [Concomitant]
  6. COSAAR (LOSARTAN POTASSIUM) [Concomitant]
  7. SANDIMUNN (CICLOSPORIN) [Concomitant]
  8. METOPROLOL TARTRATE [Concomitant]
  9. NORVASC [Concomitant]
  10. RECORMON (ERYTHROPOIETIN HUMAN) [Concomitant]

REACTIONS (13)
  - DISEASE RECURRENCE [None]
  - DRUG INTERACTION [None]
  - FLUID RETENTION [None]
  - OEDEMA PERIPHERAL [None]
  - PERICARDIAL EFFUSION [None]
  - PLEURAL EFFUSION [None]
  - PULMONARY ARTERIAL PRESSURE INCREASED [None]
  - PULMONARY EMBOLISM [None]
  - PULMONARY TUBERCULOSIS [None]
  - RENAL IMPAIRMENT [None]
  - TUBERCULOUS PLEURISY [None]
  - VENTRICULAR HYPERTROPHY [None]
  - WEIGHT INCREASED [None]
